FAERS Safety Report 5828886-4 (Version None)
Quarter: 2008Q3

REPORT INFORMATION
  Report Type: 
  Country: None (occurrence: None)
  Receive Date: 20080731
  Receipt Date: 20080716
  Transmission Date: 20090109
  Serious: Yes (Hospitalization)
  Sender: FDA-Public Use
  Company Number: JP-ASTRAZENECA-2008SE03679

PATIENT
  Age: 49 Year
  Sex: Male

DRUGS (9)
  1. CANDESARTAN CILEXETIL [Suspect]
     Indication: CARDIAC FAILURE
     Route: 048
     Dates: start: 20070918, end: 20080131
  2. CANDESARTAN CILEXETIL [Suspect]
     Route: 048
     Dates: start: 20080307, end: 20080701
  3. ACETYLSALICYLIC ACID SRT [Concomitant]
     Indication: CARDIAC FAILURE
     Route: 048
     Dates: start: 20070901
  4. BISOPROLOL FUMARATE [Concomitant]
     Indication: CARDIAC FAILURE
     Route: 048
     Dates: start: 20070901
  5. DIGOXIN [Concomitant]
     Indication: CARDIAC FAILURE
     Route: 048
     Dates: start: 20070901
  6. FUROSEMIDE [Concomitant]
     Indication: CARDIAC FAILURE
     Route: 048
     Dates: start: 20070901
  7. ROSUVASTATIN CALCIUM [Concomitant]
     Indication: CARDIAC FAILURE
     Route: 048
     Dates: start: 20070901
  8. OMEPRAZOLE [Concomitant]
     Indication: PROPHYLAXIS AGAINST GASTROINTESTINAL ULCER
     Route: 048
     Dates: start: 20070901
  9. RAMIPRIL [Concomitant]
     Indication: CARDIAC FAILURE
     Route: 048
     Dates: start: 20070901

REACTIONS (1)
  - ARTERIAL OCCLUSIVE DISEASE [None]
